FAERS Safety Report 7382989-4 (Version None)
Quarter: 2011Q1

REPORT INFORMATION
  Report Type: 
  Country: None (occurrence: None)
  Receive Date: 20110330
  Receipt Date: 20110323
  Transmission Date: 20110831
  Serious: Yes (Other)
  Sender: FDA-Public Use
  Company Number: US-US-EMD SERONO, INC.-7023088

PATIENT
  Sex: Female
  Weight: 74 kg

DRUGS (5)
  1. REBIF [Suspect]
     Indication: PRODUCT USED FOR UNKNOWN INDICATION
     Route: 058
     Dates: start: 20100527, end: 20100901
  2. LISINOPRIL [Concomitant]
     Indication: HYPERTENSION
  3. XANAX [Concomitant]
     Indication: SLEEP DISORDER
  4. ALEVE [Concomitant]
     Indication: PREMEDICATION
  5. REBIF [Suspect]
     Route: 058
     Dates: start: 20101025

REACTIONS (2)
  - INJECTION SITE ERYTHEMA [None]
  - BLOOD TRIGLYCERIDES INCREASED [None]
